FAERS Safety Report 19985738 (Version 5)
Quarter: 2024Q2

REPORT INFORMATION
  Report Type: Spontaneous
  Country: FR (occurrence: FR)
  Receive Date: 20211021
  Receipt Date: 20240425
  Transmission Date: 20240716
  Serious: Yes (Death, Hospitalization, Other)
  Sender: FDA-Public Use
  Company Number: FR-CELLTRION INC.-2021FR014220

PATIENT

DRUGS (11)
  1. RITUXIMAB [Suspect]
     Active Substance: RITUXIMAB
     Indication: Pancytopenia
     Dosage: UNK
     Route: 065
     Dates: start: 201810
  2. RITUXIMAB [Suspect]
     Active Substance: RITUXIMAB
     Indication: Waldenstrom^s macroglobulinaemia
     Dosage: UNK
  3. BENDAMUSTINE HYDROCHLORIDE [Suspect]
     Active Substance: BENDAMUSTINE HYDROCHLORIDE
     Indication: Pancytopenia
     Dosage: 90 MG/M2
  4. BENDAMUSTINE HYDROCHLORIDE [Suspect]
     Active Substance: BENDAMUSTINE HYDROCHLORIDE
     Indication: Waldenstrom^s macroglobulinaemia
  5. ANAKINRA [Concomitant]
     Active Substance: ANAKINRA
     Indication: Waldenstrom^s macroglobulinaemia
     Dosage: 300 MG, DAILY
     Route: 042
  6. ANAKINRA [Concomitant]
     Active Substance: ANAKINRA
     Indication: Pyrexia
  7. ANAKINRA [Concomitant]
     Active Substance: ANAKINRA
     Indication: Inflammation
  8. BENDAMUSTINE [Concomitant]
     Active Substance: BENDAMUSTINE
     Indication: Waldenstrom^s macroglobulinaemia
     Dosage: 90 MG/M2, CYCLIC, 6 CYCLES
  9. IBRUTINIB [Concomitant]
     Active Substance: IBRUTINIB
     Indication: Pyrexia
     Dosage: 140 MG, DAILY
     Route: 048
  10. IBRUTINIB [Concomitant]
     Active Substance: IBRUTINIB
     Indication: Waldenstrom^s macroglobulinaemia
  11. IBRUTINIB [Concomitant]
     Active Substance: IBRUTINIB
     Indication: Inflammation

REACTIONS (15)
  - Pneumonia fungal [Fatal]
  - Fungal infection [Fatal]
  - Drug ineffective [Fatal]
  - General physical health deterioration [Unknown]
  - Inflammatory marker increased [Recovering/Resolving]
  - Interferon gamma level increased [Unknown]
  - Interleukin level increased [Unknown]
  - Lymphocytosis [Unknown]
  - Oxygen saturation decreased [Unknown]
  - Respiratory rate increased [Unknown]
  - COVID-19 [Unknown]
  - Pyrexia [Recovering/Resolving]
  - Dyspnoea [Unknown]
  - Pancytopenia [Not Recovered/Not Resolved]
  - Intentional product use issue [Unknown]
